FAERS Safety Report 20304838 (Version 6)
Quarter: 2023Q2

REPORT INFORMATION
  Report Type: Spontaneous
  Country: US (occurrence: US)
  Receive Date: 20220106
  Receipt Date: 20230619
  Transmission Date: 20230722
  Serious: Yes (Hospitalization)
  Sender: FDA-Public Use
  Company Number: US-PFIZER INC-202101742050

PATIENT
  Age: 90 Year
  Sex: Female
  Weight: 63.5 kg

DRUGS (2)
  1. BOSULIF [Suspect]
     Active Substance: BOSUTINIB MONOHYDRATE
     Indication: Leukaemia
     Dosage: 100 MG
     Route: 048
  2. BOSULIF [Suspect]
     Active Substance: BOSUTINIB MONOHYDRATE
     Dosage: 200 MG, DAILY (100MG PILLS TWO EACH 100MG AND SHE TAKES TWO TABLET BY MOUTH DAILY)
     Route: 048

REACTIONS (4)
  - Off label use [Unknown]
  - Drug intolerance [Unknown]
  - Memory impairment [Unknown]
  - Product dose omission issue [Unknown]
